FAERS Safety Report 7138135-5 (Version None)
Quarter: 2010Q4

REPORT INFORMATION
  Report Type: 
  Country: None (occurrence: None)
  Receive Date: 20101103
  Receipt Date: 20100108
  Transmission Date: 20110411
  Serious: Yes (Other)
  Sender: FDA-Public Use
  Company Number: US-WYE-H12912310

PATIENT
  Age: 38 Year
  Sex: Female
  Weight: 67.65 kg

DRUGS (11)
  1. EFFEXOR XR [Suspect]
     Indication: DEPRESSION
     Dosage: ^LOW DOSE^ , ORAL, ^SLOWLY INCREASED, ORAL, 300 MG 1X PER 1 DAY, ORAL
     Route: 048
     Dates: start: 20090101, end: 20090101
  2. EFFEXOR XR [Suspect]
     Indication: DEPRESSION
     Dosage: ^LOW DOSE^ , ORAL, ^SLOWLY INCREASED, ORAL, 300 MG 1X PER 1 DAY, ORAL
     Route: 048
     Dates: end: 20090101
  3. EFFEXOR XR [Suspect]
     Indication: DEPRESSION
     Dosage: ^LOW DOSE^ , ORAL, ^SLOWLY INCREASED, ORAL, 300 MG 1X PER 1 DAY, ORAL
     Route: 048
     Dates: start: 20030101
  4. REMERON [Concomitant]
  5. TEGRETOL [Concomitant]
  6. DILANTIN [Concomitant]
  7. KEPPRA [Concomitant]
  8. FENTANYL-100 [Concomitant]
  9. NORCO [Concomitant]
  10. BACLOFEN [Concomitant]
  11. PREVACID [Concomitant]

REACTIONS (2)
  - CONVULSION [None]
  - DRUG INEFFECTIVE [None]
